FAERS Safety Report 5534696-8 (Version None)
Quarter: 2007Q4

REPORT INFORMATION
  Report Type: 
  Country: None (occurrence: None)
  Receive Date: 20071130
  Receipt Date: 20071120
  Transmission Date: 20080405
  Serious: Yes (Death, Hospitalization)
  Sender: FDA-Public Use
  Company Number: 2002-09-0148

PATIENT
  Age: 57 Year
  Sex: Female
  Weight: 47.1741 kg

DRUGS (5)
  1. THALOMID [Suspect]
     Indication: METASTATIC MALIGNANT MELANOMA
     Dosage: 200 MG, QD AT BEDTIME, ORAL, 300 MG, QD AT BEDTIME, ORAL, 400 MG, QD AT BEDTIME, ORAL
     Route: 048
     Dates: start: 20020724, end: 20020730
  2. THALOMID [Suspect]
     Indication: METASTATIC MALIGNANT MELANOMA
     Dosage: 200 MG, QD AT BEDTIME, ORAL, 300 MG, QD AT BEDTIME, ORAL, 400 MG, QD AT BEDTIME, ORAL
     Route: 048
     Dates: start: 20020731, end: 20020806
  3. THALOMID [Suspect]
     Indication: METASTATIC MALIGNANT MELANOMA
     Dosage: 200 MG, QD AT BEDTIME, ORAL, 300 MG, QD AT BEDTIME, ORAL, 400 MG, QD AT BEDTIME, ORAL
     Route: 048
     Dates: start: 20020807, end: 20020821
  4. INTRON A [Suspect]
     Indication: METASTATIC MALIGNANT MELANOMA
     Dosage: 1 MILLION UNITS, TWICE DAILY, SUBCUTANEOUS, 1 MU BID
     Route: 058
     Dates: start: 20020724, end: 20020821
  5. INTRON A [Suspect]
     Indication: METASTATIC MALIGNANT MELANOMA
     Dosage: 1 MILLION UNITS, TWICE DAILY, SUBCUTANEOUS, 1 MU BID
     Route: 058
     Dates: start: 20020823

REACTIONS (3)
  - ATRIAL FIBRILLATION [None]
  - DEHYDRATION [None]
  - SUDDEN DEATH [None]
